FAERS Safety Report 17901222 (Version 1)
Quarter: 2020Q2

REPORT INFORMATION
  Report Type: Other
  Country: CA (occurrence: CA)
  Receive Date: 20200616
  Receipt Date: 20200616
  Transmission Date: 20200714
  Serious: Yes (Other)
  Sender: FDA-Public Use
  Company Number: CA-PIERREL PHARMA S.P.A.-2020PIR00013

PATIENT
  Age: 45 Year
  Sex: Male
  Weight: 146 kg

DRUGS (1)
  1. ARTICAINE HCL AND EPINEPHRINE [Suspect]
     Active Substance: ARTICAINE HYDROCHLORIDE\EPINEPHRINE BITARTRATE
     Dosage: 0.054 MG, ONCE

REACTIONS (2)
  - Depressed level of consciousness [Recovered/Resolved]
  - Somnolence [Recovered/Resolved]
